FAERS Safety Report 5139615-4 (Version None)
Quarter: 2006Q4

REPORT INFORMATION
  Report Type: 
  Country: None (occurrence: None)
  Receive Date: 20061024
  Receipt Date: 20061019
  Transmission Date: 20070319
  Serious: Yes (Life-Threatening, Other)
  Sender: FDA-Public Use
  Company Number: TCI2006A00283

PATIENT
  Age: 60 Year
  Sex: Female

DRUGS (5)
  1. LANSOPRAZOLE [Suspect]
     Indication: GASTRIC ULCER
     Dosage: 30 MG (30 MG, 1 IN 1 D), PER ORAL
     Route: 048
     Dates: start: 20051228, end: 20060116
  2. MUCOSTA (REBAMIPIDE) TABLETS [Concomitant]
  3. ADALAT L (NIFEDIPINE) (TABLETS) [Concomitant]
  4. BEZATOL-SR (BEZAFIBRATE) (TABLETS) [Concomitant]
  5. GLIMICRON (GLICLAZIDE) [Concomitant]

REACTIONS (18)
  - ABDOMINAL DISTENSION [None]
  - BLOOD PRESSURE INCREASED [None]
  - CARDIAC FAILURE CONGESTIVE [None]
  - CARDIOMEGALY [None]
  - CONDITION AGGRAVATED [None]
  - DIABETIC NEPHROPATHY [None]
  - DRUG ERUPTION [None]
  - DRUG HYPERSENSITIVITY [None]
  - DYSPNOEA [None]
  - GENERALISED OEDEMA [None]
  - OEDEMA [None]
  - OXYGEN SATURATION DECREASED [None]
  - PLEURAL EFFUSION [None]
  - PRURITUS [None]
  - RASH [None]
  - RENAL FAILURE ACUTE [None]
  - URINE OUTPUT DECREASED [None]
  - WEIGHT INCREASED [None]
